FAERS Safety Report 8615598-7 (Version None)
Quarter: 2012Q3

REPORT INFORMATION
  Report Type: 
  Country: None (occurrence: None)
  Receive Date: 20120823
  Receipt Date: 20120814
  Transmission Date: 20120928
  Serious: Yes (Hospitalization, Disabling, Other)
  Sender: FDA-Public Use
  Company Number: US-009507513-1206USA00878

PATIENT

DRUGS (2)
  1. FOSAMAX [Suspect]
     Indication: PROPHYLAXIS
     Dosage: 70 MG, UNK
     Route: 048
     Dates: start: 20040513
  2. CORTICOSTEROIDS (UNSPECIFIED) [Concomitant]
     Dosage: UNK
     Dates: start: 20010604, end: 20110505

REACTIONS (6)
  - HIP FRACTURE [None]
  - LIMB ASYMMETRY [None]
  - DIABETES MELLITUS [None]
  - SURGERY [None]
  - FEMUR FRACTURE [None]
  - VITAMIN D DEFICIENCY [None]
